FAERS Safety Report 4327751-1 (Version None)
Quarter: 2004Q1

REPORT INFORMATION
  Report Type: 
  Country: None (occurrence: None)
  Receive Date: 20040325
  Receipt Date: 20040301
  Transmission Date: 20041129
  Serious: Yes (Hospitalization)
  Sender: FDA-Public Use
  Company Number: 200402722

PATIENT
  Age: 36 Year
  Sex: Male

DRUGS (5)
  1. PEPCID AC [Suspect]
     Indication: ABDOMINAL PAIN UPPER
     Dosage: 10 MG, ONCE, PO
     Route: 048
     Dates: start: 20040125, end: 20040125
  2. OTC CHINESE MEDICATION [Suspect]
     Dosage: PO
     Route: 048
     Dates: start: 20030226
  3. ZANTAC [Concomitant]
  4. BUSCOPAN [Concomitant]
  5. PURSENNID [Concomitant]

REACTIONS (4)
  - CHOLANGITIS [None]
  - CHOLECYSTITIS [None]
  - GASTRITIS [None]
  - MENTAL DISORDER [None]
